FAERS Safety Report 6262498-6 (Version None)
Quarter: 2009Q3

REPORT INFORMATION
  Report Type: 
  Country: None (occurrence: None)
  Receive Date: 20090709
  Receipt Date: 20090701
  Transmission Date: 20100115
  Serious: Yes (Other)
  Sender: FDA-Public Use
  Company Number: PHHY2009BR27129

PATIENT
  Sex: Male

DRUGS (5)
  1. ENTACAPONE [Suspect]
     Indication: PARKINSON'S DISEASE
     Dosage: 200MG 4 TABLETS DAILY
  2. AMANTADINE HCL [Suspect]
     Indication: PARKINSON'S DISEASE
     Dosage: 200 MG DAILY
  3. PRAMIPEXOLE DIHYDROCHLORIDE [Suspect]
     Indication: PARKINSON'S DISEASE
     Dosage: 4 MG DAILY
  4. PROLOPA [Suspect]
     Indication: PARKINSON'S DISEASE
     Dosage: 4 CAPSULES DAILY
  5. PROLOPA [Suspect]
     Dosage: 25MG TABLET 3 AND ? TABLETS DAILY

REACTIONS (4)
  - DERMATITIS PSORIASIFORM [None]
  - DRUG ERUPTION [None]
  - PERIVASCULAR DERMATITIS [None]
  - RASH PRURITIC [None]
